FAERS Safety Report 5019536-8 (Version None)
Quarter: 2006Q2

REPORT INFORMATION
  Report Type: 
  Country: None (occurrence: None)
  Receive Date: 20060601
  Receipt Date: 20060516
  Transmission Date: 20061013
  Serious: Yes (Hospitalization)
  Sender: FDA-Public Use
  Company Number: 2006001047

PATIENT
  Age: 42 Year
  Sex: Female

DRUGS (12)
  1. TARCEVA [Suspect]
     Indication: LUNG NEOPLASM MALIGNANT
     Dosage: 150MG (QD), ORAL
     Route: 048
     Dates: start: 20060201, end: 20060516
  2. OXYCONTIN [Concomitant]
  3. OXYCODONE (OXYCODONE) [Concomitant]
  4. ATIVAN [Concomitant]
  5. FOLIC ACID [Concomitant]
  6. XANAX [Concomitant]
  7. VITAMINS (VITAMINS) [Concomitant]
  8. MYSOLINE [Concomitant]
  9. CLONIDINE [Concomitant]
  10. REMERON [Concomitant]
  11. MEGESTROL ACETATE [Concomitant]
  12. DIGOXIN [Concomitant]

REACTIONS (1)
  - PNEUMOTHORAX [None]
